FAERS Safety Report 9451514 (Version 1)
Quarter: 2013Q3

REPORT INFORMATION
  Report Type: Spontaneous
  Country: PE (occurrence: PE)
  Receive Date: 20130811
  Receipt Date: 20130811
  Transmission Date: 20140515
  Serious: Yes (Other)
  Sender: FDA-Public Use
  Company Number: PE-AMGEN-PERSP2013055099

PATIENT
  Age: 59 Year
  Sex: Female

DRUGS (3)
  1. PROLIA [Suspect]
     Indication: OSTEOPOROSIS
     Dosage: 60MG, Q6MO
     Route: 058
     Dates: start: 20130724
  2. MEDROL                             /00049601/ [Concomitant]
     Dosage: UNK
  3. ALLEGRA [Concomitant]

REACTIONS (6)
  - Anaphylactoid reaction [Recovering/Resolving]
  - Laryngeal oedema [Recovering/Resolving]
  - Rash generalised [Recovering/Resolving]
  - Dyspnoea [Recovering/Resolving]
  - Swollen tongue [Recovering/Resolving]
  - Swelling face [Recovering/Resolving]
